FAERS Safety Report 7554073-8 (Version None)
Quarter: 2011Q2

REPORT INFORMATION
  Report Type: 
  Country: None (occurrence: None)
  Receive Date: 20110614
  Receipt Date: 20110614
  Transmission Date: 20111010
  Serious: Yes (Other)
  Sender: FDA-Public Use
  Company Number: None

PATIENT
  Age: 44 Year
  Sex: Female
  Weight: 74.8435 kg

DRUGS (2)
  1. TRAMADOL HYDROCHLORIDE AND ACETAMINOPHEN [Suspect]
     Indication: INTERVERTEBRAL DISC DISORDER
     Dosage: ONE TABLE 3X/DAY PO
     Route: 048
     Dates: start: 20110426, end: 20110603
  2. TRAMADOL HYDROCHLORIDE AND ACETAMINOPHEN [Suspect]
     Indication: PAIN
     Dosage: ONE TABLE 3X/DAY PO
     Route: 048
     Dates: start: 20110426, end: 20110603

REACTIONS (7)
  - FEELING HOT [None]
  - DRUG DEPENDENCE [None]
  - FATIGUE [None]
  - DEPRESSION [None]
  - RESTLESS LEGS SYNDROME [None]
  - DRUG WITHDRAWAL SYNDROME [None]
  - MALAISE [None]
